FAERS Safety Report 10736646 (Version 1)
Quarter: 2015Q1

REPORT INFORMATION
  Report Type: Spontaneous
  Country: US (occurrence: None)
  Receive Date: 20150123
  Receipt Date: 20150123
  Transmission Date: 20150721
  Serious: Yes (Hospitalization)
  Sender: FDA-Public Use
  Company Number: None

PATIENT
  Age: 67 Year
  Sex: Male
  Weight: 81.7 kg

DRUGS (8)
  1. INSULIN [Concomitant]
     Active Substance: INSULIN NOS
  2. LOPRESSOR [Concomitant]
     Active Substance: METOPROLOL TARTRATE
  3. PROTONIX [Concomitant]
     Active Substance: PANTOPRAZOLE SODIUM
  4. TAXOL [Suspect]
     Active Substance: PACLITAXEL
     Dates: end: 20141223
  5. BEVACIZUMAB (RHUMAB VEGF) [Suspect]
     Active Substance: BEVACIZUMAB
     Dates: end: 20141223
  6. CARBOPLATIN. [Suspect]
     Active Substance: CARBOPLATIN
     Dates: end: 20141223
  7. ASPIRIN. [Concomitant]
     Active Substance: ASPIRIN
  8. ATORVASTATIN [Concomitant]
     Active Substance: ATORVASTATIN

REACTIONS (11)
  - Asthenia [None]
  - Torsade de pointes [None]
  - Lactic acidosis [None]
  - Seizure [None]
  - Pneumonia [None]
  - Decreased appetite [None]
  - Ventricular tachycardia [None]
  - Electrolyte imbalance [None]
  - Apparent life threatening event [None]
  - Neutropenia [None]
  - Dysgeusia [None]

NARRATIVE: CASE EVENT DATE: 20150121
